FAERS Safety Report 8963946 (Version 1)
Quarter: 2012Q4

REPORT INFORMATION
  Report Type: 
  Country: BR (occurrence: BR)
  Receive Date: 20121214
  Receipt Date: 20121214
  Transmission Date: 20130627
  Serious: Yes (Death)
  Sender: FDA-Public Use
  Company Number: BR-AMGEN-BRASP2012080300

PATIENT
  Age: 87 Year
  Sex: Female
  Weight: 31 kg

DRUGS (2)
  1. PROLIA [Suspect]
     Indication: OSTEOPOROSIS
     Dosage: 60 mg, q6mo
     Route: 065
     Dates: start: 20120704, end: 20120704
  2. PROTUSS [Suspect]
     Indication: PRODUCT USED FOR UNKNOWN INDICATION
     Dosage: 1SAC At night
     Route: 065
     Dates: start: 20120704, end: 20121105

REACTIONS (3)
  - Aneurysm [Fatal]
  - Pain [Unknown]
  - Asthenia [Unknown]
